FAERS Safety Report 8525991-9 (Version None)
Quarter: 2012Q3

REPORT INFORMATION
  Report Type: 
  Country: None (occurrence: None)
  Receive Date: 20120720
  Receipt Date: 20120708
  Transmission Date: 20120928
  Serious: Yes (Other)
  Sender: FDA-Public Use
  Company Number: CHPA2012US015160

PATIENT
  Age: 56 Year
  Sex: Female

DRUGS (1)
  1. EXCEDRIN (MIGRAINE) [Suspect]
     Dosage: UNK, UNK
     Route: 065

REACTIONS (4)
  - OSTEOARTHRITIS [None]
  - FIBROMYALGIA [None]
  - JOINT INJURY [None]
  - PAIN [None]
